FAERS Safety Report 4901992-4 (Version None)
Quarter: 2006Q1

REPORT INFORMATION
  Report Type: 
  Country: None (occurrence: None)
  Receive Date: 20060201
  Receipt Date: 20060201
  Transmission Date: 20060701
  Serious: Yes (Hospitalization)
  Sender: FDA-Public Use
  Company Number: None

PATIENT
  Sex: Male
  Weight: 121.8 kg

DRUGS (5)
  1. PHENOL [Suspect]
     Indication: SURGERY
     Dosage: COTTON SWABS X 3 (30 SEC. EACH) TOPICAL
     Route: 061
     Dates: start: 20051117
  2. LIDOCAINE [Suspect]
     Indication: ANAESTHESIA
     Dosage: 1% (3 CC GIVEN) X 1 INJECTION
     Dates: start: 20051117
  3. LIDOCAINE [Suspect]
     Indication: SURGERY
     Dosage: 1% (3 CC GIVEN) X 1 INJECTION
     Dates: start: 20051117
  4. ACETAMINOPHEN [Concomitant]
  5. OMEPRAZOLE [Concomitant]

REACTIONS (8)
  - ASTHENIA [None]
  - DIZZINESS [None]
  - HYPERHIDROSIS [None]
  - NAUSEA [None]
  - POST PROCEDURAL COMPLICATION [None]
  - SYNCOPE [None]
  - SYNCOPE VASOVAGAL [None]
  - VOMITING [None]
